FAERS Safety Report 8905759 (Version 1)
Quarter: 2012Q4

REPORT INFORMATION
  Report Type: 
  Country: US (occurrence: US)
  Receive Date: 20121113
  Receipt Date: 20121113
  Transmission Date: 20130627
  Serious: Yes (Death, Hospitalization)
  Sender: FDA-Public Use
  Company Number: US-GLAXOSMITHKLINE-A0999657A

PATIENT
  Age: 49 Year
  Sex: Female

DRUGS (1)
  1. FLOLAN [Suspect]
     Indication: PULMONARY ARTERIAL HYPERTENSION
     Dosage: 65U Continuous
     Route: 042
     Dates: start: 19991019, end: 20121105

REACTIONS (2)
  - Death [Fatal]
  - Adverse event [Unknown]
